FAERS Safety Report 5757208-2 (Version None)
Quarter: 2008Q2

REPORT INFORMATION
  Report Type: 
  Country: None (occurrence: None)
  Receive Date: 20080603
  Receipt Date: 20080602
  Transmission Date: 20081010
  Serious: Yes (Hospitalization)
  Sender: FDA-Public Use
  Company Number: US-BRISTOL-MYERS SQUIBB COMPANY-14213292

PATIENT
  Age: 75 Year
  Sex: Male
  Weight: 83 kg

DRUGS (2)
  1. ETOPOSIDE [Suspect]
     Indication: ACUTE MYELOID LEUKAEMIA
     Dosage: INITIALLY STARTED ON 29APR08-STOPPED:100MG, EVERY DAY ON DAYS 1-3+ 8-10 OF 28-DAY CYCLE
     Route: 048
     Dates: start: 20080506
  2. TIPIFARNIB [Suspect]
     Indication: ACUTE MYELOID LEUKAEMIA
     Dosage: TREATED ON DAYS 1-14 OF A 28 DAY CYCLE.CYCLE ONE 15000MG ADMINISTERED,FORMULATION:TABLET
     Route: 048
     Dates: start: 20080429, end: 20080512

REACTIONS (6)
  - DEHYDRATION [None]
  - DIZZINESS [None]
  - MUSCULAR WEAKNESS [None]
  - NAUSEA [None]
  - RENAL FAILURE ACUTE [None]
  - VOMITING [None]
